FAERS Safety Report 7306495-8 (Version None)
Quarter: 2011Q1

REPORT INFORMATION
  Report Type: 
  Country: None (occurrence: None)
  Receive Date: 20110210
  Receipt Date: 20110128
  Transmission Date: 20110831
  Serious: Yes (Death, Hospitalization)
  Sender: FDA-Public Use
  Company Number: 2011000494

PATIENT
  Age: 64 Year
  Sex: Female

DRUGS (3)
  1. SEROPLEX (TABLET) [Suspect]
     Indication: PRODUCT USED FOR UNKNOWN INDICATION
     Dosage: (10 MG,QD), ORAL
     Route: 048
     Dates: start: 20101117, end: 20101228
  2. TARCEVA [Suspect]
     Indication: LUNG NEOPLASM MALIGNANT
     Dosage: (150 MG,QD), ORAL
     Route: 048
     Dates: start: 20101218, end: 20101228
  3. SOLU-MEDROL [Suspect]
     Indication: PRODUCT USED FOR UNKNOWN INDICATION
     Dosage: (120 MG,QD), INTRAVENOUS
     Route: 042
     Dates: start: 20101117, end: 20101205

REACTIONS (2)
  - OESOPHAGITIS [None]
  - GASTRODUODENAL ULCER [None]
